FAERS Safety Report 15832188 (Version 1)
Quarter: 2019Q1

REPORT INFORMATION
  Report Type: Spontaneous
  Country: US (occurrence: US)
  Receive Date: 20190116
  Receipt Date: 20190116
  Transmission Date: 20190417
  Serious: Yes (Other)
  Sender: FDA-Public Use
  Company Number: PHEH2019US001776

PATIENT
  Sex: Female

DRUGS (4)
  1. AMIODARONE HYDROCHLORIDE. [Suspect]
     Active Substance: AMIODARONE HYDROCHLORIDE
     Indication: ATRIAL FIBRILLATION
     Dosage: UNK
     Route: 048
     Dates: start: 201506
  2. AMIODARONE ZYDUS [Suspect]
     Active Substance: AMIODARONE
     Indication: ATRIAL FIBRILLATION
     Route: 065
  3. AMIODARONE HYDROCHLORIDE. [Suspect]
     Active Substance: AMIODARONE HYDROCHLORIDE
     Indication: ATRIAL FIBRILLATION
     Route: 065
  4. AMIODARONE TEVA [Suspect]
     Active Substance: AMIODARONE
     Indication: ATRIAL FIBRILLATION
     Route: 065

REACTIONS (14)
  - Chest pain [Unknown]
  - Dizziness [Unknown]
  - Blindness [Unknown]
  - Interstitial lung disease [Unknown]
  - Fatigue [Unknown]
  - Lung disorder [Unknown]
  - Dyspnoea [Unknown]
  - Thyroid disorder [Unknown]
  - Product use in unapproved indication [Unknown]
  - Hypothyroidism [Unknown]
  - Cough [Unknown]
  - Asthenia [Unknown]
  - Renal disorder [Unknown]
  - Oedema [Unknown]

NARRATIVE: CASE EVENT DATE: 201604
